FAERS Safety Report 14610746 (Version 3)
Quarter: 2018Q3

REPORT INFORMATION
  Report Type: Report from Study
  Country: None (occurrence: US)
  Receive Date: 20180308
  Receipt Date: 20180920
  Transmission Date: 20181010
  Serious: Yes (Hospitalization)
  Sender: FDA-Public Use
  Company Number: US-ABBVIE-18K-163-2262312-00

PATIENT
  Age: 72 Year
  Sex: Male
  Weight: 83.08 kg

DRUGS (6)
  1. VITAMIN D [Concomitant]
     Active Substance: CHOLECALCIFEROL
     Indication: VITAMIN D DEFICIENCY
  2. HUMIRA [Suspect]
     Active Substance: ADALIMUMAB
     Indication: RHEUMATOID ARTHRITIS
     Route: 058
     Dates: start: 2017, end: 2017
  3. LASIX [Concomitant]
     Active Substance: FUROSEMIDE
     Indication: DIURETIC THERAPY
  4. HUMIRA [Suspect]
     Active Substance: ADALIMUMAB
     Route: 058
     Dates: start: 20180220, end: 20180220
  5. PENTASA [Concomitant]
     Active Substance: MESALAMINE
     Indication: CROHN^S DISEASE
  6. HUMIRA [Suspect]
     Active Substance: ADALIMUMAB
     Indication: CROHN^S DISEASE
     Route: 058
     Dates: start: 2016, end: 20170904

REACTIONS (15)
  - Rheumatoid arthritis [Not Recovered/Not Resolved]
  - Hyperaesthesia [Recovered/Resolved]
  - Vitamin B12 decreased [Unknown]
  - Amnesia [Unknown]
  - Pre-existing condition improved [Recovering/Resolving]
  - Scratch [Unknown]
  - Increased tendency to bruise [Unknown]
  - Vitamin B12 deficiency [Recovering/Resolving]
  - Procedural pain [Recovered/Resolved]
  - Injection site urticaria [Recovering/Resolving]
  - Vitamin B12 decreased [Recovered/Resolved]
  - Solar lentigo [Unknown]
  - Skin atrophy [Unknown]
  - Limb discomfort [Unknown]
  - Neuropathy peripheral [Unknown]

NARRATIVE: CASE EVENT DATE: 201701
